FAERS Safety Report 18762398 (Version 1)
Quarter: 2021Q1

REPORT INFORMATION
  Report Type: Spontaneous
  Country: US (occurrence: US)
  Receive Date: 20210120
  Receipt Date: 20210120
  Transmission Date: 20210419
  Serious: No
  Sender: FDA-Public Use
  Company Number: US-MYLANLABS-2021M1002557

PATIENT
  Age: 45 Year
  Sex: Female
  Weight: 50 kg

DRUGS (1)
  1. ESTRADIOL TRANSDERMAL SYSTEM [Suspect]
     Active Substance: ESTRADIOL
     Indication: OESTROGEN REPLACEMENT THERAPY
     Dosage: 0.05 MILLIGRAM, BIWEEKLY
     Route: 062
     Dates: start: 20201226

REACTIONS (2)
  - Application site pain [Not Recovered/Not Resolved]
  - Lack of application site rotation [Unknown]

NARRATIVE: CASE EVENT DATE: 20210112
